FAERS Safety Report 4488901-X (Version None)
Quarter: 2004Q3

REPORT INFORMATION
  Report Type: 
  Country: None (occurrence: None)
  Receive Date: 20040921
  Receipt Date: 20030725
  Transmission Date: 20050211
  Serious: Yes (Hospitalization)
  Sender: FDA-Public Use
  Company Number: 163-20785-03070636

PATIENT
  Age: 68 Year
  Sex: Male

DRUGS (7)
  1. THALOMID [Suspect]
     Indication: GLIOBLASTOMA MULTIFORME
     Dosage: 200 MG, DAILY, ORAL
     Route: 048
     Dates: start: 20030710, end: 20030722
  2. DEXAMETHASONE [Concomitant]
  3. TEMODAR [Concomitant]
  4. ZOFRAN [Concomitant]
  5. CELEBREX [Concomitant]
  6. COUMADIN [Concomitant]
  7. SENOKOT [Concomitant]

REACTIONS (6)
  - FATIGUE [None]
  - PRURITUS [None]
  - RASH PAPULAR [None]
  - SKIN DESQUAMATION [None]
  - SWELLING [None]
  - THROMBOSIS [None]
